FAERS Safety Report 4313495-9 (Version None)
Quarter: 2004Q1

REPORT INFORMATION
  Report Type: 
  Country: None (occurrence: None)
  Receive Date: 20040308
  Receipt Date: 20040227
  Transmission Date: 20041129
  Serious: Yes (Hospitalization)
  Sender: FDA-Public Use
  Company Number: FR-ROCHE-360118

PATIENT
  Age: 61 Year
  Sex: Male

DRUGS (6)
  1. ROCEPHIN [Suspect]
     Indication: BRAIN ABSCESS
     Route: 042
     Dates: start: 20011211, end: 20011217
  2. EUPANTOL [Concomitant]
     Indication: OESOPHAGITIS
     Route: 048
  3. CLAFORAN [Concomitant]
     Route: 042
     Dates: start: 20011114, end: 20011211
  4. CLAMOXYL [Concomitant]
     Route: 042
     Dates: start: 20011114, end: 20011211
  5. ZESTRIL [Concomitant]
     Indication: ESSENTIAL HYPERTENSION
     Route: 048
  6. LOVENOX [Concomitant]
     Indication: ARTERIAL DISORDER
     Route: 058

REACTIONS (5)
  - BLOOD PRESSURE SYSTOLIC INCREASED [None]
  - DYSPNOEA [None]
  - ERYTHEMA [None]
  - MALAISE [None]
  - SENSE OF OPPRESSION [None]
